FAERS Safety Report 7349824-1 (Version None)
Quarter: 2011Q1

REPORT INFORMATION
  Report Type: 
  Country: None (occurrence: None)
  Receive Date: 20110222
  Receipt Date: 20100809
  Transmission Date: 20110831
  Serious: Yes (Hospitalization)
  Sender: FDA-Public Use
  Company Number: WAES 1008USA00875

PATIENT
  Age: 53 Year
  Sex: Male

DRUGS (4)
  1. METFORMIN HCL [Concomitant]
  2. LEVOTHYROXINE SODIUM [Concomitant]
  3. ZOCOR [Suspect]
     Indication: HIGH DENSITY LIPOPROTEIN DECREASED
     Dosage: 10 MG/DAILY/PO
     Route: 048
     Dates: start: 20080101, end: 20100512
  4. NIASPAN [Suspect]
     Indication: PRODUCT USED FOR UNKNOWN INDICATION
     Dosage: 500 MG/DAILY/PO
     Route: 048
     Dates: start: 20091201, end: 20100512

REACTIONS (1)
  - RHABDOMYOLYSIS [None]
